FAERS Safety Report 7039081-8 (Version None)
Quarter: 2010Q4

REPORT INFORMATION
  Report Type: 
  Country: None (occurrence: None)
  Receive Date: 20101012
  Receipt Date: 20101001
  Transmission Date: 20110411
  Serious: Yes (Hospitalization, Other)
  Sender: FDA-Public Use
  Company Number: US-US-EMD SERONO, INC.-7019723

PATIENT
  Sex: Male
  Weight: 70 kg

DRUGS (4)
  1. REBIF [Suspect]
     Indication: MULTIPLE SCLEROSIS
     Route: 058
     Dates: start: 20040420
  2. IBUPROFEN [Concomitant]
     Indication: PREMEDICATION
  3. PROVIGIL [Concomitant]
     Indication: FATIGUE
  4. HYDROCODONE [Concomitant]
     Indication: BACK PAIN
     Dates: start: 19890101

REACTIONS (9)
  - AMNESIA [None]
  - CEREBRAL HAEMORRHAGE [None]
  - CONVULSION [None]
  - DIZZINESS [None]
  - HEAD INJURY [None]
  - INJECTION SITE PAIN [None]
  - LOSS OF CONSCIOUSNESS [None]
  - PHYSICAL ASSAULT [None]
  - WEIGHT DECREASED [None]
